FAERS Safety Report 4293332-1 (Version None)
Quarter: 2004Q1

REPORT INFORMATION
  Report Type: 
  Country: None (occurrence: None)
  Receive Date: 20040210
  Receipt Date: 20040130
  Transmission Date: 20041129
  Serious: Yes (Other)
  Sender: FDA-Public Use
  Company Number: US-JNJFOC-20040200201

PATIENT
  Age: 59 Year
  Sex: Male
  Weight: 94.8018 kg

DRUGS (7)
  1. REMINYL [Suspect]
     Indication: DEMENTIA ALZHEIMER'S TYPE
     Dosage: 8 MG, 1 IN 1 DAY, ORAL
     Route: 048
     Dates: start: 20040114, end: 20040127
  2. FLOMAX [Concomitant]
  3. AGGRENOX [Concomitant]
  4. METFORMIN HCL [Concomitant]
  5. WELLBUTRIN XR (BUPROPION HYDROCHLORIDE) [Concomitant]
  6. LIPITOR [Concomitant]
  7. PROCARDIA XL [Concomitant]

REACTIONS (6)
  - ASTHENIA [None]
  - BLOOD GLUCOSE INCREASED [None]
  - DIZZINESS [None]
  - FLUSHING [None]
  - HYPERHIDROSIS [None]
  - TRANSIENT ISCHAEMIC ATTACK [None]
